FAERS Safety Report 7578503-0 (Version None)
Quarter: 2011Q2

REPORT INFORMATION
  Report Type: 
  Country: None (occurrence: None)
  Receive Date: 20110628
  Receipt Date: 20110622
  Transmission Date: 20111010
  Serious: Yes (Hospitalization)
  Sender: FDA-Public Use
  Company Number: US-B.I. PHARMACEUTICALS,INC./RIDGEFIELD-2011-BP-11124BP

PATIENT
  Sex: Female

DRUGS (2)
  1. PRADAXA [Suspect]
     Dosage: 300 MG
  2. DIOVAN HCT [Concomitant]
     Dates: start: 20060518

REACTIONS (4)
  - HEADACHE [None]
  - MALAISE [None]
  - HYPERTENSION [None]
  - HALLUCINATION [None]
